FAERS Safety Report 19843365 (Version 3)
Quarter: 2022Q1

REPORT INFORMATION
  Report Type: Report from Study
  Country: US (occurrence: US)
  Receive Date: 20210917
  Receipt Date: 20220115
  Transmission Date: 20220423
  Serious: Yes (Other)
  Sender: FDA-Public Use
  Company Number: US-REGENERON PHARMACEUTICALS, INC.-2021-84007

PATIENT
  Age: 33 Year
  Sex: Female

DRUGS (3)
  1. CASIRIVIMAB\IMDEVIMAB [Suspect]
     Active Substance: CASIRIVIMAB\IMDEVIMAB
     Indication: COVID-19
     Dosage: 1200 MG, SINGLE
     Route: 042
     Dates: start: 20210804, end: 20210804
  2. FLUOXETINE [Concomitant]
     Active Substance: FLUOXETINE HYDROCHLORIDE
     Indication: Product used for unknown indication
     Dosage: 30 MG, IN THE MORNING
  3. LEVOTHYROXINE [Concomitant]
     Active Substance: LEVOTHYROXINE
     Indication: Product used for unknown indication
     Dosage: 1 DF, 3 DAYS A WEEK ALONG WITH LEVOTHYROXINE 150 MCG

REACTIONS (5)
  - Pain [Recovering/Resolving]
  - Chest pain [Recovering/Resolving]
  - Blood pressure increased [Recovering/Resolving]
  - Infusion related reaction [Recovering/Resolving]
  - Heart rate increased [Recovering/Resolving]

NARRATIVE: CASE EVENT DATE: 20210804
